FAERS Safety Report 12186344 (Version 1)
Quarter: 2016Q1

REPORT INFORMATION
  Report Type: Spontaneous
  Country: RU (occurrence: RU)
  Receive Date: 20160317
  Receipt Date: 20160317
  Transmission Date: 20160526
  Serious: Yes (Other)
  Sender: FDA-Public Use
  Company Number: RU-APOTEX-2016AP007115

PATIENT

DRUGS (4)
  1. SIRDALUD [Suspect]
     Active Substance: TIZANIDINE
     Indication: PAIN
     Dosage: 4 MG, QD
     Dates: start: 201602, end: 201602
  2. PANTOGAM [Suspect]
     Active Substance: CALCIUM HOPANTENATE
     Indication: PAIN
     Dosage: 750 MG, QD
     Dates: start: 201602, end: 201602
  3. PAXIL [Suspect]
     Active Substance: PAROXETINE HYDROCHLORIDE
     Indication: PAIN
     Dosage: 20 MG, QD
     Dates: start: 201602, end: 201602
  4. VASOBRAL ORAL LIQUID [Suspect]
     Active Substance: CAFFEINE\DIHYDROERGOCRYPTINE MESYLATE
     Indication: PAIN
     Dosage: 4 ML, QD
     Dates: start: 201602, end: 201602

REACTIONS (3)
  - Vestibular disorder [Recovering/Resolving]
  - Off label use [Unknown]
  - Dizziness [Recovering/Resolving]

NARRATIVE: CASE EVENT DATE: 201602
